FAERS Safety Report 8614627-4 (Version None)
Quarter: 2012Q3

REPORT INFORMATION
  Report Type: 
  Country: None (occurrence: None)
  Receive Date: 20120823
  Receipt Date: 20120821
  Transmission Date: 20120928
  Serious: Yes (Death, Other)
  Sender: FDA-Public Use
  Company Number: PHHY2012AR072065

PATIENT
  Sex: Female

DRUGS (1)
  1. DIOVAN [Suspect]
     Indication: BLOOD PRESSURE
     Dosage: 160 MG, DAILY
     Dates: start: 20100101, end: 20120601

REACTIONS (4)
  - PNEUMONIA ASPIRATION [None]
  - DEATH [None]
  - ARRHYTHMIA [None]
  - DYSPHAGIA [None]
